FAERS Safety Report 8545604 (Version 2)
Quarter: 2013Q3

REPORT INFORMATION
  Report Type: Spontaneous
  Country: US (occurrence: US)
  Receive Date: 20120503
  Receipt Date: 20130806
  Transmission Date: 20140515
  Serious: Yes (Other)
  Sender: FDA-Public Use
  Company Number: US-ROCHE-1035823

PATIENT
  Sex: Female
  Weight: 74.91 kg

DRUGS (2)
  1. ACCUTANE [Suspect]
     Indication: ACNE
     Route: 065
     Dates: start: 1995
  2. ACCUTANE [Suspect]
     Route: 065
     Dates: start: 19970512, end: 199711

REACTIONS (3)
  - Inflammatory bowel disease [Unknown]
  - Proctitis ulcerative [Unknown]
  - Anxiety [Unknown]
